FAERS Safety Report 25534759 (Version 1)
Quarter: 2025Q3

REPORT INFORMATION
  Report Type: Spontaneous
  Country: US (occurrence: None)
  Receive Date: 20250709
  Receipt Date: 20250709
  Transmission Date: 20251020
  Serious: Yes (Other)
  Sender: FDA-CTU
  Company Number: None

PATIENT
  Age: 37 Year
  Sex: Female
  Weight: 171.0 kg

DRUGS (1)
  1. ASPIRIN [Suspect]
     Active Substance: ASPIRIN
     Indication: Pregnancy
     Dosage: 81 MG DAILY ORAL
     Route: 048
     Dates: start: 20241213

REACTIONS (2)
  - Premature rupture of membranes [None]
  - Caesarean section [None]

NARRATIVE: CASE EVENT DATE: 20250511
